FAERS Safety Report 15419444 (Version 2)
Quarter: 2020Q4

REPORT INFORMATION
  Report Type: Spontaneous
  Country: US (occurrence: US)
  Receive Date: 20180924
  Receipt Date: 20201124
  Transmission Date: 20210113
  Serious: No
  Sender: FDA-Public Use
  Company Number: US-SA-2018SA263678

PATIENT

DRUGS (6)
  1. DUPIXENT [Suspect]
     Active Substance: DUPILUMAB
     Indication: DERMATITIS ATOPIC
     Dosage: 300 MG, QOW
     Route: 058
     Dates: start: 20171103
  2. PSEUDOEPHEDRINE. [Concomitant]
     Active Substance: PSEUDOEPHEDRINE HYDROCHLORIDE
  3. RESTASIS [Concomitant]
     Active Substance: CYCLOSPORINE
  4. OSPHENA [Concomitant]
     Active Substance: OSPEMIFENE
  5. IBUPROFEN. [Concomitant]
     Active Substance: IBUPROFEN
  6. DUPIXENT [Suspect]
     Active Substance: DUPILUMAB
     Indication: MECHANICAL URTICARIA
     Dosage: 300 MG, QOW
     Route: 058
     Dates: start: 20200826

REACTIONS (6)
  - Dermatitis atopic [Not Recovered/Not Resolved]
  - Arthralgia [Unknown]
  - Product dose omission issue [Not Recovered/Not Resolved]
  - Visual impairment [Unknown]
  - Condition aggravated [Unknown]
  - Product use in unapproved indication [Unknown]

NARRATIVE: CASE EVENT DATE: 201807
